FAERS Safety Report 4756624-5 (Version None)
Quarter: 2005Q3

REPORT INFORMATION
  Report Type: 
  Country: None (occurrence: None)
  Receive Date: 20050830
  Receipt Date: 20050714
  Transmission Date: 20060218
  Serious: Yes (Other)
  Sender: FDA-Public Use
  Company Number: DE-MERCK-0507DEU00131

PATIENT
  Age: 39 Year
  Sex: Male

DRUGS (1)
  1. PROSCAR [Suspect]
     Route: 048
     Dates: start: 20050101

REACTIONS (1)
  - ATRIOVENTRICULAR BLOCK COMPLETE [None]
